FAERS Safety Report 5132746-4 (Version None)
Quarter: 2006Q4

REPORT INFORMATION
  Report Type: 
  Country: None (occurrence: None)
  Receive Date: 20061017
  Receipt Date: 20060928
  Transmission Date: 20070319
  Serious: Yes (Life-Threatening, Hospitalization)
  Sender: FDA-Public Use
  Company Number: 2006MP001045

PATIENT
  Age: 64 Year
  Sex: Male
  Weight: 90 kg

DRUGS (2)
  1. GLIADEL [Suspect]
     Indication: GLIOBLASTOMA
     Dosage: 61.6 MG; X1; ICER
     Route: 018
     Dates: start: 20060606
  2. DEPAKENE [Concomitant]

REACTIONS (3)
  - BRAIN ABSCESS [None]
  - EMPYEMA [None]
  - PROPIONIBACTERIUM INFECTION [None]
